FAERS Safety Report 5076786-2 (Version None)
Quarter: 2006Q3

REPORT INFORMATION
  Report Type: 
  Country: None (occurrence: None)
  Receive Date: 20060725
  Receipt Date: 20060427
  Transmission Date: 20061208
  Serious: No
  Sender: FDA-Public Use
  Company Number: 200613234BWH

PATIENT
  Sex: Female

DRUGS (2)
  1. NEXAVAR [Suspect]
     Dosage: ORAL
     Route: 048
     Dates: start: 20060101
  2. EYE DROPS [Concomitant]

REACTIONS (2)
  - INTRAOCULAR PRESSURE INCREASED [None]
  - VISUAL ACUITY REDUCED [None]
